FAERS Safety Report 24315272 (Version 2)
Quarter: 2025Q2

REPORT INFORMATION
  Report Type: Spontaneous
  Country: JP (occurrence: JP)
  Receive Date: 20240913
  Receipt Date: 20250619
  Transmission Date: 20250717
  Serious: Yes (Other)
  Sender: ALEXION PHARMACEUTICALS
  Company Number: 2024A164973

PATIENT
  Age: 53 Year

DRUGS (4)
  1. FASLODEX [Suspect]
     Active Substance: FULVESTRANT
     Indication: Breast cancer
  2. FASLODEX [Suspect]
     Active Substance: FULVESTRANT
  3. TRUQAP [Suspect]
     Active Substance: CAPIVASERTIB
     Indication: Breast cancer
     Dosage: 800 MILLIGRAM, QD, ADMINISTERED FOR 4 DAYS IN A ROW FOLLOWED BY 3 DAYS OF BREAK
  4. ALLELOCK [Concomitant]
     Active Substance: OLOPATADINE HYDROCHLORIDE

REACTIONS (3)
  - Renal impairment [Recovering/Resolving]
  - Rash [Recovered/Resolved]
  - Diarrhoea [Not Recovered/Not Resolved]
